FAERS Safety Report 19620277 (Version 1)
Quarter: 2021Q3

REPORT INFORMATION
  Report Type: Spontaneous
  Country: US (occurrence: US)
  Receive Date: 20210727
  Receipt Date: 20210727
  Transmission Date: 20211014
  Serious: No
  Sender: FDA-Public Use
  Company Number: None

PATIENT
  Age: 23 Year
  Sex: Female

DRUGS (1)
  1. COSENTYX [Suspect]
     Active Substance: SECUKINUMAB
     Indication: PSORIASIS
     Dosage: OTHER FREQUENCY:OTHER;?
     Route: 058
     Dates: start: 202104

REACTIONS (3)
  - Respiratory tract congestion [None]
  - Nasal congestion [None]
  - Product dose omission issue [None]

NARRATIVE: CASE EVENT DATE: 20210512
